FAERS Safety Report 8055712-8 (Version None)
Quarter: 2012Q1

REPORT INFORMATION
  Report Type: 
  Country: None (occurrence: None)
  Receive Date: 20120119
  Receipt Date: 20120116
  Transmission Date: 20120608
  Serious: Yes (Other)
  Sender: FDA-Public Use
  Company Number: FR-PFIZER INC-2011313217

PATIENT
  Age: 57 Year
  Sex: Male

DRUGS (3)
  1. CYTOTEC [Suspect]
     Dosage: 80 MG, 1X/DAY
  2. AVASTIN [Concomitant]
     Dosage: UNK
     Dates: start: 20110801
  3. CYTOTEC [Suspect]
     Dosage: 80 MG, 2X/DAY
     Dates: start: 20111201

REACTIONS (3)
  - HOT FLUSH [None]
  - HAEMORRHOIDAL HAEMORRHAGE [None]
  - PYREXIA [None]
